FAERS Safety Report 10229699 (Version 3)
Quarter: 2014Q3

REPORT INFORMATION
  Report Type: Spontaneous
  Country: EC (occurrence: EC)
  Receive Date: 20140611
  Receipt Date: 20140812
  Transmission Date: 20150326
  Serious: Yes (Death, Hospitalization)
  Sender: FDA-Public Use
  Company Number: PHHY2014EC071295

PATIENT

DRUGS (2)
  1. MYCOPHENOLATE MOFETIL. [Concomitant]
     Active Substance: MYCOPHENOLATE MOFETIL
     Indication: LIVER TRANSPLANT
     Dosage: UNK UKN, UNK
     Dates: end: 201312
  2. CERTICAN [Suspect]
     Active Substance: EVEROLIMUS
     Indication: LIVER TRANSPLANT
     Dosage: 0.75 MG, BID
     Route: 048
     Dates: start: 20130722, end: 201312

REACTIONS (10)
  - Mental status changes [Fatal]
  - Liver transplant rejection [Fatal]
  - Chromaturia [Fatal]
  - Cytomegalovirus infection [Fatal]
  - Immunosuppressant drug level increased [Unknown]
  - Hepatitis toxic [Fatal]
  - Haemoglobin increased [Fatal]
  - Jaundice [Fatal]
  - Fatigue [Fatal]
  - Decreased appetite [Fatal]

NARRATIVE: CASE EVENT DATE: 20130823
